FAERS Safety Report 9490062 (Version 1)
Quarter: 2013Q3

REPORT INFORMATION
  Report Type: Spontaneous
  Country: US (occurrence: US)
  Receive Date: 20130829
  Receipt Date: 20130829
  Transmission Date: 20140515
  Serious: No
  Sender: FDA-Public Use
  Company Number: US-009507513-1308USA006048

PATIENT
  Age: 35 Year
  Sex: Female
  Weight: 55.33 kg

DRUGS (1)
  1. NUVARING [Suspect]
     Indication: CONTRACEPTION
     Dosage: 1 RING FOR 3 WEEKS THEN A WEEK FREE BREAK
     Route: 067
     Dates: start: 2008

REACTIONS (3)
  - Menorrhagia [Not Recovered/Not Resolved]
  - Device expulsion [Recovered/Resolved]
  - Inappropriate schedule of drug administration [Unknown]
